FAERS Safety Report 17594335 (Version 3)
Quarter: 2020Q2

REPORT INFORMATION
  Report Type: Spontaneous
  Country: US (occurrence: US)
  Receive Date: 20200327
  Receipt Date: 20200624
  Transmission Date: 20200713
  Serious: Yes (Other)
  Sender: FDA-Public Use
  Company Number: US-ACTELION-A-NJ2020-201688

PATIENT
  Age: 67 Year
  Sex: Male
  Weight: 92.97 kg

DRUGS (5)
  1. VELETRI [Suspect]
     Active Substance: EPOPROSTENOL
     Indication: PULMONARY ARTERIAL HYPERTENSION
     Dosage: 44 NG/KG, PER MIN
     Route: 042
  2. ADEMPAS [Concomitant]
     Active Substance: RIOCIGUAT
  3. FUROSEMIDE. [Concomitant]
     Active Substance: FUROSEMIDE
  4. VELETRI [Suspect]
     Active Substance: EPOPROSTENOL
     Dosage: 12 NG/KG, PER MIN
     Route: 042
  5. VELETRI [Suspect]
     Active Substance: EPOPROSTENOL
     Dosage: 26 NG/KG, PER MIN
     Route: 042

REACTIONS (9)
  - Headache [Unknown]
  - Face oedema [Not Recovered/Not Resolved]
  - Neuropathy peripheral [Unknown]
  - Flushing [Recovering/Resolving]
  - Pain in jaw [Recovering/Resolving]
  - Product dose omission [Recovered/Resolved]
  - Product administration error [Recovered/Resolved]
  - Pain in extremity [Unknown]
  - Periorbital swelling [Not Recovered/Not Resolved]

NARRATIVE: CASE EVENT DATE: 20200525
